FAERS Safety Report 22075399 (Version 6)
Quarter: 2023Q2

REPORT INFORMATION
  Report Type: Report from Study
  Country: US (occurrence: None)
  Receive Date: 20230308
  Receipt Date: 20230426
  Transmission Date: 20230722
  Serious: Yes (Hospitalization)
  Sender: FDA-Public Use
  Company Number: US-ROCHE-3294856

PATIENT
  Age: 63 Year
  Sex: Male
  Weight: 97.8 kg

DRUGS (27)
  1. GLOFITAMAB [Suspect]
     Active Substance: GLOFITAMAB
     Indication: Diffuse large B-cell lymphoma
     Dosage: ON 22/FEB/2023, THE PATIENT RECEIVED MOST RECENT DOSE OF STUDY DRUG GLOFITAMAB PRIOR TO AE/SAE, 2.5M
     Route: 042
     Dates: start: 20230222
  2. OBINUTUZUMAB [Suspect]
     Active Substance: OBINUTUZUMAB
     Indication: Diffuse large B-cell lymphoma
     Dosage: ON 14/FEB/2023, THE PATIENT RECEIVED MOST RECENT DOSE (1000) OF STUDY DRUG IFOSFAMIDE PRIOR TO AE/SA
     Route: 042
     Dates: start: 20230214
  3. ETOPOSIDE [Suspect]
     Active Substance: ETOPOSIDE
     Indication: Diffuse large B-cell lymphoma
     Dosage: ON 16/FEB/2023, THE PATIENT RECEIVED MOST RECENT DOSE OF STUDY DRUG PRIOR TO AE/SAE
     Route: 042
     Dates: start: 20230214
  4. MESNA [Suspect]
     Active Substance: MESNA
     Indication: Diffuse large B-cell lymphoma
     Dosage: ON 15/FEB/2023, THE PATIENT RECEIVED MOST RECENT DOSE OF STUDY DRUG PRIOR TO AE.
     Route: 042
     Dates: start: 20230215
  5. CARBOPLATIN [Suspect]
     Active Substance: CARBOPLATIN
     Indication: Diffuse large B-cell lymphoma
     Dosage: ON 15/FEB/2023, THE PATIENT RECEIVED MOST RECENT DOSE OF STUDY DRUG PRIOR TO AE/SAE
     Route: 042
     Dates: start: 20230215
  6. IFOSFAMIDE [Suspect]
     Active Substance: IFOSFAMIDE
     Indication: Diffuse large B-cell lymphoma
     Dosage: ON 15/FEB/2023, THE PATIENT RECEIVED MOST RECENT DOSE (5000) OF STUDY DRUG IFOSFAMIDE PRIOR TO AE/SA
     Route: 042
     Dates: start: 20230215
  7. TYLENOL [Concomitant]
     Active Substance: ACETAMINOPHEN
  8. BENADRYL [Concomitant]
     Active Substance: DIPHENHYDRAMINE HYDROCHLORIDE
     Route: 042
  9. ASPIRIN [Concomitant]
     Active Substance: ASPIRIN
     Route: 048
     Dates: start: 2015
  10. LORATADINE [Concomitant]
     Active Substance: LORATADINE
     Indication: Hypersensitivity
     Route: 048
     Dates: start: 2015
  11. FLUCONAZOLE [Concomitant]
     Active Substance: FLUCONAZOLE
     Indication: Hypersensitivity
     Route: 055
     Dates: start: 2015
  12. LISINOPRIL [Concomitant]
     Active Substance: LISINOPRIL
     Route: 048
     Dates: start: 2008
  13. SERTRALINE [Concomitant]
     Active Substance: SERTRALINE HYDROCHLORIDE
     Indication: Anxiety
     Route: 048
     Dates: start: 2022
  14. MORPHINE [Concomitant]
     Active Substance: MORPHINE
     Indication: Pain
     Route: 048
     Dates: start: 2022
  15. PANTOPRAZOLE [Concomitant]
     Active Substance: PANTOPRAZOLE
     Indication: Gastrooesophageal reflux disease
     Route: 048
     Dates: start: 2022
  16. GABAPENTIN [Concomitant]
     Active Substance: GABAPENTIN
     Indication: Neuropathy peripheral
     Route: 048
     Dates: start: 2013
  17. HYDROCODONE [Concomitant]
     Active Substance: HYDROCODONE
     Indication: Pain
     Route: 048
     Dates: start: 1993
  18. ALPRAZOLAM [Concomitant]
     Active Substance: ALPRAZOLAM
     Indication: Anxiety
     Route: 048
     Dates: start: 2018
  19. LANTUS [Concomitant]
     Active Substance: INSULIN GLARGINE
     Indication: Type 2 diabetes mellitus
     Route: 058
     Dates: start: 2023
  20. STOOL SOFTENER (DOCUSATE) [Concomitant]
     Active Substance: DOCUSATE
     Route: 048
     Dates: start: 2022
  21. EXCEDRIN (UNITED STATES) [Concomitant]
     Indication: Headache
     Route: 048
     Dates: start: 2022
  22. ALLOPURINOL [Concomitant]
     Active Substance: ALLOPURINOL
     Route: 048
     Dates: start: 20230211
  23. INSULIN LISPRO [Concomitant]
     Active Substance: INSULIN LISPRO
     Route: 058
  24. DEXAMETHASONE [Concomitant]
     Active Substance: DEXAMETHASONE
     Route: 042
     Dates: start: 20230223, end: 20230223
  25. ACETAMINOPHEN [Concomitant]
     Active Substance: ACETAMINOPHEN
     Route: 048
     Dates: start: 20230223, end: 20230223
  26. DIPHENHYDRAMINE [Concomitant]
     Active Substance: DIPHENHYDRAMINE
     Route: 048
     Dates: start: 20230223, end: 20230223
  27. OXYGEN [Concomitant]
     Active Substance: OXYGEN

REACTIONS (2)
  - Cytokine release syndrome [Recovered/Resolved]
  - Neutropenia [Recovered/Resolved]

NARRATIVE: CASE EVENT DATE: 20230222
